FAERS Safety Report 9519941 (Version 1)
Quarter: 2013Q1

REPORT INFORMATION
  Report Type: Spontaneous
  Country: US (occurrence: None)
  Receive Date: 20130305
  Receipt Date: 20130305
  Transmission Date: 20140127
  Serious: Yes (Other)
  Sender: FDA-Public Use
  Company Number: 163-21880-11123832

PATIENT
  Age: 62 Year
  Sex: Female

DRUGS (3)
  1. REVLIMID (LENALIDOMIDE) (15 MILLIGRAM, CAPSULES) [Suspect]
     Indication: PLASMA CELL MYELOMA
     Dosage: #21
     Route: 048
     Dates: start: 201007
  2. IMODIUM [Concomitant]
  3. FLAGYL [Concomitant]

REACTIONS (5)
  - Rectal haemorrhage [None]
  - Diarrhoea [None]
  - Micturition urgency [None]
  - Fatigue [None]
  - White blood cell count decreased [None]
